FAERS Safety Report 12581428 (Version 1)
Quarter: 2016Q3

REPORT INFORMATION
  Report Type: Spontaneous
  Country: US (occurrence: US)
  Receive Date: 20160721
  Receipt Date: 20160721
  Transmission Date: 20161109
  Serious: No
  Sender: FDA-Public Use
  Company Number: US-PRESTIUM-2015RN000099

PATIENT
  Age: 63 Year
  Sex: Female
  Weight: 77.98 kg

DRUGS (1)
  1. CLOBETASOL PROPIONATE. [Suspect]
     Active Substance: CLOBETASOL PROPIONATE
     Indication: PRODUCT USED FOR UNKNOWN INDICATION
     Dosage: 50 GRAMS, USED FOR ABOUT 3 WEEKS, BID
     Route: 061

REACTIONS (8)
  - Visual impairment [Not Recovered/Not Resolved]
  - Anger [Not Recovered/Not Resolved]
  - Increased appetite [Not Recovered/Not Resolved]
  - Device defective [Not Recovered/Not Resolved]
  - Abdominal pain upper [Not Recovered/Not Resolved]
  - Weight increased [Not Recovered/Not Resolved]
  - Disturbance in attention [Not Recovered/Not Resolved]
  - Skin reaction [Not Recovered/Not Resolved]
